FAERS Safety Report 15220732 (Version 2)
Quarter: 2018Q3

REPORT INFORMATION
  Report Type: Report from Study
  Country: None (occurrence: US)
  Receive Date: 20180731
  Receipt Date: 20180926
  Transmission Date: 20181010
  Serious: Yes (Hospitalization)
  Sender: FDA-Public Use
  Company Number: US-ABBVIE-18K-163-2433919-00

PATIENT
  Sex: Female

DRUGS (1)
  1. HUMIRA [Suspect]
     Active Substance: ADALIMUMAB
     Indication: RHEUMATOID ARTHRITIS
     Route: 058
     Dates: end: 201802

REACTIONS (8)
  - Cardiac failure congestive [Recovered/Resolved]
  - Pulmonary thrombosis [Unknown]
  - Oedema [Unknown]
  - Pneumonia [Unknown]
  - Asthenia [Unknown]
  - Nasopharyngitis [Unknown]
  - Pain [Unknown]
  - Malaise [Unknown]
